FAERS Safety Report 12720743 (Version 1)
Quarter: 2016Q3

REPORT INFORMATION
  Report Type: Other
  Country: US (occurrence: US)
  Receive Date: 20160907
  Receipt Date: 20160907
  Transmission Date: 20161109
  Serious: No
  Sender: FDA-Public Use
  Company Number: US-COL_21240_2015

PATIENT
  Age: 64 Year
  Sex: Female

DRUGS (1)
  1. COLGATE TOTAL ADVANCED WHITENING [Suspect]
     Active Substance: SODIUM FLUORIDE\TRICLOSAN
     Indication: PRODUCT USED FOR UNKNOWN INDICATION
     Dosage: COVERED THE WHOLE HEAD OF THE TOOTHBRUSH/ ONLY ONE TIME/
     Route: 048
     Dates: start: 20151105, end: 20151105

REACTIONS (2)
  - Oral mucosal discolouration [Not Recovered/Not Resolved]
  - Gingival discolouration [None]

NARRATIVE: CASE EVENT DATE: 20151105
